FAERS Safety Report 21872054 (Version 1)
Quarter: 2023Q1

REPORT INFORMATION
  Report Type: Spontaneous
  Country: US (occurrence: None)
  Receive Date: 20230114
  Receipt Date: 20230114
  Transmission Date: 20230417
  Serious: Yes (Disabling, Other)
  Sender: FDA-Public Use
  Company Number: None

PATIENT
  Age: 35 Year
  Sex: Female
  Weight: 51.75 kg

DRUGS (5)
  1. TRIAMCINOLONE ACETONIDE [Suspect]
     Active Substance: TRIAMCINOLONE ACETONIDE
     Indication: Eczema
     Dosage: FREQUENCY : DAILY;?
     Route: 062
     Dates: start: 20220316, end: 20221008
  2. DESONIDE [Suspect]
     Active Substance: DESONIDE
     Indication: Eczema
     Dosage: FREQUENCY : DAILY;?
     Route: 062
     Dates: start: 20220228, end: 20221003
  3. VITAMIN D [Concomitant]
     Active Substance: VITAMIN D NOS
  4. VITAMIN B [Concomitant]
     Active Substance: VITAMIN B
  5. allegra 60mg [Concomitant]

REACTIONS (15)
  - Rash [None]
  - Erythema [None]
  - Burning sensation [None]
  - Urticaria [None]
  - Pustule [None]
  - Dependence [None]
  - Skin exfoliation [None]
  - Skin weeping [None]
  - Pruritus [None]
  - Weight decreased [None]
  - Alopecia [None]
  - Body temperature abnormal [None]
  - Hyperhidrosis [None]
  - Insomnia [None]
  - Withdrawal syndrome [None]

NARRATIVE: CASE EVENT DATE: 20220923
